FAERS Safety Report 15679531 (Version 2)
Quarter: 2019Q3

REPORT INFORMATION
  Report Type: Report from Study
  Country: AU (occurrence: AU)
  Receive Date: 20181203
  Receipt Date: 20190712
  Transmission Date: 20191004
  Serious: Yes (Hospitalization)
  Sender: FDA-Public Use
  Company Number: AU-TOLMAR, INC.-2018AU011841

PATIENT

DRUGS (1)
  1. ELIGARD [Suspect]
     Active Substance: LEUPROLIDE ACETATE
     Indication: PROSTATE CANCER
     Dosage: 22.5 MG, THREE MONTHLY
     Route: 058
     Dates: start: 20180821

REACTIONS (2)
  - Back pain [Not Recovered/Not Resolved]
  - Renal cancer [Recovering/Resolving]

NARRATIVE: CASE EVENT DATE: 2018
